FAERS Safety Report 8597438-8 (Version None)
Quarter: 2012Q3

REPORT INFORMATION
  Report Type: 
  Country: None (occurrence: None)
  Receive Date: 20120816
  Receipt Date: 20120807
  Transmission Date: 20120928
  Serious: Yes (Other)
  Sender: FDA-Public Use
  Company Number: US-JNJFOC-20120804073

PATIENT
  Age: 3 Year
  Sex: Female

DRUGS (8)
  1. ABCIXIMAB [Suspect]
     Indication: CORONARY ARTERY OCCLUSION
     Route: 042
  2. NITROGLYCERIN [Concomitant]
     Indication: ACUTE MYOCARDIAL INFARCTION
     Route: 041
  3. TISSUE PLASMINOGEN ACTIVATOR [Suspect]
     Indication: ACUTE MYOCARDIAL INFARCTION
     Route: 042
  4. BETA-BLOCKER, NOS [Concomitant]
     Indication: ACUTE MYOCARDIAL INFARCTION
     Route: 048
  5. ABCIXIMAB [Suspect]
     Indication: ACUTE MYOCARDIAL INFARCTION
     Route: 042
  6. TISSUE PLASMINOGEN ACTIVATOR [Suspect]
     Indication: CORONARY ARTERY OCCLUSION
     Route: 042
  7. HEPARIN [Concomitant]
     Indication: ACUTE MYOCARDIAL INFARCTION
     Route: 065
  8. MILRINONE LACTATE [Concomitant]
     Indication: ACUTE MYOCARDIAL INFARCTION
     Route: 065

REACTIONS (1)
  - HAEMATOMA [None]
